FAERS Safety Report 8449795-0 (Version None)
Quarter: 2012Q2

REPORT INFORMATION
  Report Type: 
  Country: None (occurrence: None)
  Receive Date: 20120614
  Receipt Date: 20120614
  Transmission Date: 20120825
  Serious: Yes (Other)
  Sender: FDA-Public Use
  Company Number: None

PATIENT
  Age: 56 Year
  Sex: Male

DRUGS (1)
  1. COPAXONE [Suspect]
     Dosage: 20MG SQ DAILY
     Route: 058
     Dates: start: 20100101

REACTIONS (2)
  - HEART RATE INCREASED [None]
  - DYSPNOEA [None]
